FAERS Safety Report 7496283-4 (Version None)
Quarter: 2011Q2

REPORT INFORMATION
  Report Type: 
  Country: None (occurrence: None)
  Receive Date: 20110523
  Receipt Date: 20110518
  Transmission Date: 20111010
  Serious: Yes (Death)
  Sender: FDA-Public Use
  Company Number: JP-SANOFI-AVENTIS-2011SA003848

PATIENT
  Age: 66 Year
  Sex: Female
  Weight: 47 kg

DRUGS (12)
  1. LEUCOVORIN CALCIUM [Concomitant]
     Indication: COLON CANCER
     Route: 042
     Dates: start: 20100518, end: 20100518
  2. HEPARIN [Concomitant]
     Indication: FEBRILE NEUTROPENIA
     Route: 041
     Dates: start: 20100412, end: 20100615
  3. OXALIPLATIN [Suspect]
     Indication: COLON CANCER
     Route: 041
     Dates: start: 20100518, end: 20100518
  4. FLUOROURACIL [Suspect]
     Indication: COLON CANCER
     Route: 040
     Dates: start: 20100518, end: 20100518
  5. DEXAMETHASONE SODIUM PHOSPHATE [Concomitant]
     Indication: PREMEDICATION
     Route: 041
     Dates: start: 20100518, end: 20100601
  6. FLUOROURACIL [Suspect]
     Route: 041
     Dates: start: 20100518, end: 20100519
  7. GRANISETRON HCL [Concomitant]
     Indication: PREMEDICATION
     Route: 041
     Dates: start: 20100518, end: 20100601
  8. LEUCOVORIN CALCIUM [Concomitant]
     Route: 042
     Dates: start: 20100601, end: 20100601
  9. OXALIPLATIN [Suspect]
     Route: 041
     Dates: start: 20100601, end: 20100601
  10. FLUOROURACIL [Suspect]
     Route: 040
     Dates: start: 20100601, end: 20100601
  11. FLUOROURACIL [Suspect]
     Route: 041
     Dates: start: 20100601, end: 20100602
  12. ZYVOX [Concomitant]
     Indication: PNEUMONIA STAPHYLOCOCCAL
     Route: 041
     Dates: start: 20100610, end: 20100615

REACTIONS (5)
  - PLATELET COUNT DECREASED [None]
  - WHITE BLOOD CELL COUNT DECREASED [None]
  - HAEMOGLOBIN DECREASED [None]
  - PNEUMONIA STAPHYLOCOCCAL [None]
  - NEUTROPHIL COUNT DECREASED [None]
